FAERS Safety Report 24306321 (Version 1)
Quarter: 2024Q3

REPORT INFORMATION
  Report Type: Report from Study
  Country: CN (occurrence: CN)
  Receive Date: 20240911
  Receipt Date: 20240911
  Transmission Date: 20241017
  Serious: Yes (Other)
  Sender: NOVARTIS
  Company Number: CN-002147023-NVSC2024CN180168

PATIENT
  Sex: Female

DRUGS (1)
  1. KISQALI [Suspect]
     Active Substance: RIBOCICLIB
     Indication: Breast cancer
     Dosage: (2 TABLETS) 400 MG QD
     Route: 048
     Dates: start: 202403

REACTIONS (2)
  - White blood cell count decreased [Recovering/Resolving]
  - Metastases to lymph nodes [Unknown]
